FAERS Safety Report 7469333-9 (Version None)
Quarter: 2011Q2

REPORT INFORMATION
  Report Type: 
  Country: None (occurrence: None)
  Receive Date: 20110429
  Receipt Date: 20110414
  Transmission Date: 20111010
  Serious: Yes (Other)
  Sender: FDA-Public Use
  Company Number: DSJ-2011-07496

PATIENT
  Age: 74 Year
  Sex: Female

DRUGS (2)
  1. BENICAR [Suspect]
     Indication: HYPERTENSION
     Dosage: 20 MG (20 MG,1 IN 1 D),PER ORAL
     Route: 048
     Dates: start: 20110201, end: 20110401
  2. SITAGLIPTIN/METFORMIN (METFORMIN AND SITAGLIPTIN) (METFORMIN AND SITAG [Suspect]
     Indication: DIABETES MELLITUS
     Dosage: 50 MG/850 MG,PER ORAL
     Route: 048
     Dates: start: 20110201, end: 20110401

REACTIONS (6)
  - FALL [None]
  - DECREASED APPETITE [None]
  - NAUSEA [None]
  - ASTHENIA [None]
  - DIZZINESS [None]
  - THERAPY CESSATION [None]
